FAERS Safety Report 5910548-6 (Version None)
Quarter: 2008Q4

REPORT INFORMATION
  Report Type: 
  Country: None (occurrence: None)
  Receive Date: 20081007
  Receipt Date: 20080305
  Transmission Date: 20090506
  Serious: No
  Sender: FDA-Public Use
  Company Number: US-ASTRAZENECA-2008UW04612

PATIENT
  Age: 65 Year
  Sex: Female

DRUGS (4)
  1. ARIMIDEX [Suspect]
     Indication: BREAST CANCER
     Route: 048
     Dates: start: 20050101
  2. ACTONEL [Concomitant]
  3. NEXIUM [Concomitant]
  4. OSCAL [Concomitant]

REACTIONS (3)
  - ARTHRITIS [None]
  - BODY HEIGHT DECREASED [None]
  - BONE PAIN [None]
